FAERS Safety Report 6737743-0 (Version None)
Quarter: 2010Q2

REPORT INFORMATION
  Report Type: 
  Country: None (occurrence: None)
  Receive Date: 20100524
  Receipt Date: 20100521
  Transmission Date: 20101027
  Serious: Yes (Hospitalization)
  Sender: FDA-Public Use
  Company Number: FI-NAPPMUNDI-GBR-2003-0000587

PATIENT

DRUGS (20)
  1. CODE BROKEN OXY ORAL SOLUTION 1MG/ML [Suspect]
     Dosage: 6.4 ML, Q6H
     Route: 048
     Dates: start: 20030508, end: 20030509
  2. MORFIN                             /00036301/ [Suspect]
     Indication: PAIN
     Dosage: UNK, PRN
     Route: 042
     Dates: end: 20030509
  3. PROPOFOL [Concomitant]
     Indication: ANAESTHESIA
     Dosage: UNK, UNK
     Route: 042
     Dates: start: 20030508, end: 20030509
  4. PROPOFOL [Concomitant]
     Dosage: 80 MG, UNK
     Route: 042
     Dates: start: 20030507, end: 20030507
  5. PROPOFOL [Concomitant]
     Dosage: 10-15MGS X25
     Route: 042
     Dates: start: 20030507, end: 20030508
  6. LIDOCAINE [Concomitant]
     Indication: ANAESTHESIA
     Dosage: 20 MG, SINGLE
     Route: 042
     Dates: start: 20030507, end: 20030507
  7. ROCURONIUM BROMIDE [Concomitant]
     Indication: ANAESTHESIA
     Dosage: 27 MG, UNK
     Route: 042
     Dates: start: 20030507, end: 20030507
  8. GLYCOPYRROLATE                     /00196202/ [Concomitant]
     Indication: ANAESTHESIA
     Dosage: .1 MG, UNK
     Route: 042
     Dates: start: 20030507, end: 20030507
  9. NEOSTIGMINE [Concomitant]
     Indication: ANAESTHESIA
     Dosage: UNK, UNK
     Route: 042
     Dates: start: 20030507, end: 20030507
  10. PROPACETAMOL [Concomitant]
     Indication: ANTIPYRESIS
     Dosage: UNK, UNK
     Route: 042
     Dates: start: 20030508, end: 20030508
  11. DIAZEPAM [Concomitant]
     Dosage: UNK, UNK
     Route: 042
     Dates: start: 20030508, end: 20030509
  12. CEFUROXIME [Concomitant]
     Indication: ANTIBIOTIC PROPHYLAXIS
     Dosage: 2250 MG, Q8H
     Route: 042
     Dates: start: 20030508
  13. ABSENOR                            /00228501/ [Concomitant]
     Indication: EPILEPSY
     Dosage: 300 AND 400MG
     Route: 048
     Dates: start: 20030507
  14. FENTANYL [Concomitant]
     Indication: ANAESTHESIA
     Dosage: 345 MCG, UNK
     Route: 042
     Dates: start: 20030507, end: 20030507
  15. DIAPAM                             /00017001/ [Concomitant]
     Indication: PREMEDICATION
     Dosage: 5 MG, SINGLE
     Route: 048
     Dates: start: 20030507, end: 20030507
  16. GLYCOSTIGMIN [Concomitant]
     Indication: ANAESTHESIA
     Dosage: .6 ML, UNK
     Route: 042
     Dates: start: 20030507, end: 20030507
  17. SEVOFLURANE [Concomitant]
     Indication: ANAESTHESIA
     Dosage: 1.1-2ET%
     Route: 055
     Dates: start: 20030507, end: 20030507
  18. DIAZEPAM [Concomitant]
     Indication: SEDATION
     Dosage: 12 TIMES
     Route: 042
     Dates: start: 20030507, end: 20030508
  19. ACETAMINOPHEN [Concomitant]
     Indication: PYREXIA
     Dosage: 2 GRAM, UNK
     Route: 042
     Dates: start: 20030508, end: 20030508
  20. ZINACEF                            /00454601/ [Concomitant]
     Indication: INFECTION
     Dosage: 750 MG, Q8H
     Route: 042
     Dates: start: 20030508, end: 20030512

REACTIONS (2)
  - BILE DUCT STONE [None]
  - CHOLANGITIS [None]
